FAERS Safety Report 6268039-1 (Version None)
Quarter: 2009Q3

REPORT INFORMATION
  Report Type: 
  Country: None (occurrence: None)
  Receive Date: 20090713
  Receipt Date: 20090608
  Transmission Date: 20100115
  Serious: No
  Sender: FDA-Public Use
  Company Number: A03200902687

PATIENT
  Age: 81 Year
  Sex: Male

DRUGS (5)
  1. OFORTA - (FLUDARABINE PHOSPHATE) - UNKNOWN - UNIT DOSE: UNKNOWN / UNKN [Suspect]
     Indication: CHRONIC LYMPHOCYTIC LEUKAEMIA
     Dosage: 80 MG/DAY 1-3 / 60 MG/DAY 1-3, ORAL
     Route: 048
     Dates: start: 20080301, end: 20080602
  2. OFORTA - (FLUDARABINE PHOSPHATE) - UNKNOWN - UNIT DOSE: UNKNOWN / UNKN [Suspect]
     Indication: CHRONIC LYMPHOCYTIC LEUKAEMIA
     Dosage: 80 MG/DAY 1-3 / 60 MG/DAY 1-3, ORAL
     Route: 048
     Dates: start: 20081001
  3. PRACTAZIN (ALTIZIDE + SPIRONOLACTONE) [Concomitant]
  4. CHLORAMINOPHENE (CHLORAMBUCIL) [Concomitant]
  5. BACTRIM [Concomitant]

REACTIONS (7)
  - ANAEMIA [None]
  - ATRIAL FIBRILLATION [None]
  - BEDRIDDEN [None]
  - DRUG INTERACTION [None]
  - LYMPHOCYTOSIS [None]
  - PYREXIA [None]
  - THROMBOCYTOPENIA [None]
